FAERS Safety Report 7191018-7 (Version None)
Quarter: 2010Q4

REPORT INFORMATION
  Report Type: 
  Country: None (occurrence: None)
  Receive Date: 20101222
  Receipt Date: 20101222
  Transmission Date: 20110411
  Serious: Yes (Life-Threatening, Other)
  Sender: FDA-Public Use
  Company Number: None

PATIENT
  Sex: Female
  Weight: 89.8122 kg

DRUGS (2)
  1. PROPOXYPHENE HCL AND ACETAMINOPHEN [Suspect]
     Indication: FIBROMYALGIA
     Dosage: 100-650 MG TB 3 ADAY BY MOUTH
     Route: 048
     Dates: start: 20090101, end: 20100101
  2. PROPOXYPHENE HCL AND ACETAMINOPHEN [Suspect]
     Indication: PAIN
     Dosage: 100-650 MG TB 3 ADAY BY MOUTH
     Route: 048
     Dates: start: 20090101, end: 20100101

REACTIONS (3)
  - FEELING ABNORMAL [None]
  - HEART RATE INCREASED [None]
  - INSOMNIA [None]
